FAERS Safety Report 9341003 (Version 1)
Quarter: 2013Q2

REPORT INFORMATION
  Report Type: Spontaneous
  Country: GB (occurrence: None)
  Receive Date: 20130530
  Receipt Date: 20130530
  Transmission Date: 20140414
  Serious: Yes (Other)
  Sender: FDA-Public Use
  Company Number: 2013036193

PATIENT
  Age: 69 Year
  Sex: Male

DRUGS (1)
  1. PRIVIGEN [Suspect]
     Indication: CHRONIC INFLAMMATORY DEMYELINATING POLYRADICULONEUROPATHY
     Dosage: BATCH ADMINISTERED 4 TIMES
     Route: 042
     Dates: start: 20130114

REACTIONS (5)
  - Back pain [None]
  - Myalgia [None]
  - Bone pain [None]
  - Pain in extremity [None]
  - Muscular weakness [None]
